FAERS Safety Report 25835666 (Version 2)
Quarter: 2025Q4

REPORT INFORMATION
  Report Type: Report from Study
  Country: US (occurrence: US)
  Receive Date: 20250923
  Receipt Date: 20251210
  Transmission Date: 20260117
  Serious: Yes (Hospitalization, Other)
  Sender: Pyros Pharmaceuticals
  Company Number: US-PYROS PHARMACEUTICALS, INC-20241100581

PATIENT

DRUGS (13)
  1. VIGAFYDE [Suspect]
     Active Substance: VIGABATRIN
     Indication: Infantile spasms
     Dosage: 450 MG (4.5 ML), BID
     Dates: start: 20241115, end: 202411
  2. VIGAFYDE [Suspect]
     Active Substance: VIGABATRIN
     Dosage: 600 MG (6 ML), BID
     Dates: start: 202411, end: 202501
  3. VIGAFYDE [Suspect]
     Active Substance: VIGABATRIN
     Dosage: 600 MG, BID (6 ML)
     Dates: start: 202501
  4. VIGAFYDE [Suspect]
     Active Substance: VIGABATRIN
     Dosage: 6 ML, BID
     Dates: start: 20250426
  5. VIGAFYDE [Suspect]
     Active Substance: VIGABATRIN
     Dosage: 800 MG, BID (8 ML)
     Dates: start: 2025
  6. IMODIUM [Concomitant]
     Active Substance: LOPERAMIDE HYDROCHLORIDE
     Indication: Product used for unknown indication
     Dosage: UNK
     Route: 065
  7. FAMOTIDINE [Concomitant]
     Active Substance: FAMOTIDINE
     Indication: Product used for unknown indication
     Dosage: UNK
     Route: 065
  8. Iron complex [Concomitant]
     Indication: Product used for unknown indication
     Dosage: UNK
     Route: 065
  9. AIRSUPRA [Concomitant]
     Active Substance: ALBUTEROL SULFATE\BUDESONIDE
     Indication: Product used for unknown indication
     Dosage: UNK
     Route: 065
  10. ERYTHROMYCIN [Concomitant]
     Active Substance: ERYTHROMYCIN
     Indication: Product used for unknown indication
     Dosage: UNK
     Route: 065
  11. ATROVENT [Concomitant]
     Active Substance: IPRATROPIUM BROMIDE
     Indication: Product used for unknown indication
     Dosage: UNK
     Route: 065
  12. SYMBICORT [Concomitant]
     Active Substance: BUDESONIDE\FORMOTEROL FUMARATE DIHYDRATE
     Indication: Product used for unknown indication
     Dosage: UNK
     Route: 065
  13. ALBUTEROL SULFATE [Concomitant]
     Active Substance: ALBUTEROL SULFATE
     Indication: Product used for unknown indication
     Dosage: UNK
     Route: 065

REACTIONS (10)
  - Weight decreased [Unknown]
  - Heart rate decreased [Recovered/Resolved]
  - Hospitalisation [Unknown]
  - Seizure [Unknown]
  - Respiratory tract infection bacterial [Unknown]
  - Pneumonia [Recovered/Resolved]
  - Nausea [Not Recovered/Not Resolved]
  - Secretion discharge [Not Recovered/Not Resolved]
  - Vomiting [Recovered/Resolved]
  - Prescribed overdose [Unknown]

NARRATIVE: CASE EVENT DATE: 20240101
